FAERS Safety Report 9742782 (Version 1)
Quarter: 2013Q4

REPORT INFORMATION
  Report Type: Spontaneous
  Country: US (occurrence: US)
  Receive Date: 20131210
  Receipt Date: 20131210
  Transmission Date: 20140711
  Serious: No
  Sender: FDA-Public Use
  Company Number: US-ENDO PHARMACEUTICALS INC.-BACL20110026

PATIENT
  Age: 49 Year
  Sex: Female
  Weight: 63.56 kg

DRUGS (2)
  1. BACLOFEN TABLETS 20MG [Suspect]
     Indication: MUSCLE SPASMS
     Route: 048
     Dates: start: 1994
  2. CARBAMAZEPINE [Concomitant]
     Indication: CONVULSION
     Dosage: UNKNOWN
     Route: 048
     Dates: start: 1994

REACTIONS (2)
  - Urticaria [Recovered/Resolved]
  - Drug ineffective [Unknown]
